FAERS Safety Report 10249159 (Version 1)
Quarter: 2014Q2

REPORT INFORMATION
  Report Type: Report from Study
  Country: GB (occurrence: GB)
  Receive Date: 20140620
  Receipt Date: 20140620
  Transmission Date: 20141212
  Serious: Yes (Other)
  Sender: FDA-Public Use
  Company Number: ALCN2014GB003626

PATIENT
  Age: 29 Year
  Sex: Male

DRUGS (5)
  1. TRIESENCE [Suspect]
     Indication: DEVELOPMENTAL GLAUCOMA
     Dosage: 4 MG, ONCE/SINGLE
     Route: 031
  2. TRIESENCE [Suspect]
     Dosage: 4 MG, ONCE/SINGLE
     Route: 031
  3. DIAMOX                                  /CAN/ [Concomitant]
     Dosage: 125 MG, TID
  4. CEFTAZIDIME [Concomitant]
     Indication: BIOPSY
     Dosage: 1 DF, ONCE/SINGLE
     Route: 031
  5. VANCOMYCIN [Concomitant]
     Indication: BIOPSY
     Dosage: 1 DF, ONCE/SINGLE
     Route: 031

REACTIONS (9)
  - Cytomegalovirus chorioretinitis [Recovering/Resolving]
  - Retinal artery occlusion [Recovering/Resolving]
  - Choroidal neovascularisation [Recovering/Resolving]
  - Retinal detachment [Recovering/Resolving]
  - Metamorphopsia [Recovering/Resolving]
  - Visual acuity reduced [Recovering/Resolving]
  - Visual field defect [Recovering/Resolving]
  - Retinal haemorrhage [Recovering/Resolving]
  - Visual impairment [Recovering/Resolving]
